FAERS Safety Report 8131316 (Version 2)
Quarter: 2014Q4

REPORT INFORMATION
  Report Type: Spontaneous
  Country: US (occurrence: US)
  Receive Date: 20110912
  Receipt Date: 20141114
  Transmission Date: 20150529
  Serious: Yes (Hospitalization, Other)
  Sender: FDA-Public Use
  Company Number: US-GLAXOSMITHKLINE-A0879975A

PATIENT

DRUGS (1)
  1. AVANDIA [Suspect]
     Active Substance: ROSIGLITAZONE MALEATE
     Indication: TYPE 2 DIABETES MELLITUS
     Dosage: 8 MG, 1D
     Route: 048
     Dates: start: 200404, end: 2008

REACTIONS (2)
  - Cardiac failure congestive [Unknown]
  - Heart rate irregular [Unknown]
